FAERS Safety Report 6743786-3 (Version None)
Quarter: 2010Q2

REPORT INFORMATION
  Report Type: 
  Country: None (occurrence: None)
  Receive Date: 20100527
  Receipt Date: 20100521
  Transmission Date: 20101027
  Serious: No
  Sender: FDA-Public Use
  Company Number: JP-ELI_LILLY_AND_COMPANY-JP201004005744

PATIENT
  Age: 58 Year
  Sex: Male
  Weight: 52 kg

DRUGS (1)
  1. PEMETREXED [Suspect]
     Indication: LUNG ADENOCARCINOMA RECURRENT
     Dosage: 790 MG, OTHER
     Route: 042
     Dates: start: 20090821, end: 20090915

REACTIONS (1)
  - NO ADVERSE EVENT [None]
